FAERS Safety Report 8306636-X (Version None)
Quarter: 2012Q2

REPORT INFORMATION
  Report Type: 
  Country: None (occurrence: None)
  Receive Date: 20120424
  Receipt Date: 20120416
  Transmission Date: 20120825
  Serious: Yes (Hospitalization)
  Sender: FDA-Public Use
  Company Number: US-BAYER-2011-095442

PATIENT
  Age: 41 Year
  Sex: Female
  Weight: 82 kg

DRUGS (11)
  1. VIACTIV [CALCIUM] [Concomitant]
  2. PROAIR HFA [Concomitant]
     Dosage: 90 ?G, AS NEEDED
     Route: 045
     Dates: start: 20090614
  3. PHENERGAN HCL [Concomitant]
  4. BENZONATATE [Concomitant]
     Dosage: 100 MG, UNK
     Dates: start: 20090614
  5. YAZ [Suspect]
     Indication: CONTRACEPTION
     Dosage: UNK
     Route: 048
     Dates: start: 20070829, end: 20091014
  6. IBUPROFEN (ADVIL) [Concomitant]
     Indication: HEADACHE
  7. NASONEX [Concomitant]
     Dosage: UNK
     Dates: start: 20090713
  8. MULTIVITAMIN WITH MINERALS [Concomitant]
     Indication: VITAMIN SUPPLEMENTATION
     Dosage: UNK UNK, QD
     Route: 048
     Dates: start: 20090713
  9. VICODIN [Concomitant]
  10. ADVAIR DISKUS 100/50 [Concomitant]
     Indication: DYSPNOEA
     Dosage: 50 ?G, PRN
     Route: 045
     Dates: start: 20090614
  11. COREG [Concomitant]
     Dosage: 10 MG, EVERY EVENING.
     Route: 048
     Dates: start: 20090713, end: 20090801

REACTIONS (10)
  - ANXIETY [None]
  - CHOLECYSTITIS CHRONIC [None]
  - GENERAL PHYSICAL HEALTH DETERIORATION [None]
  - BACK PAIN [None]
  - PAIN [None]
  - ABDOMINAL PAIN [None]
  - INCISION SITE PAIN [None]
  - MUSCULOSKELETAL STIFFNESS [None]
  - CHOLELITHIASIS [None]
  - EMOTIONAL DISTRESS [None]
